FAERS Safety Report 4443089-6 (Version None)
Quarter: 2004Q3

REPORT INFORMATION
  Report Type: 
  Country: None (occurrence: None)
  Receive Date: 20040908
  Receipt Date: 20040901
  Transmission Date: 20050211
  Serious: Yes (Other)
  Sender: FDA-Public Use
  Company Number: EMADSS2003003776

PATIENT
  Age: 45 Year
  Sex: Male

DRUGS (4)
  1. REMICADE [Suspect]
     Indication: CROHN'S DISEASE
     Route: 042
  2. IMUREL [Concomitant]
     Route: 065
     Dates: start: 20010101
  3. CIPROXIN [Concomitant]
     Route: 065
     Dates: start: 20010101
  4. FLAGYL [Concomitant]
     Route: 065
     Dates: start: 20010101

REACTIONS (5)
  - ECZEMA VESICULAR [None]
  - PERIANAL ABSCESS [None]
  - PIGMENTATION DISORDER [None]
  - PSORIASIS [None]
  - RASH PSORIAFORM [None]
